FAERS Safety Report 22357458 (Version 2)
Quarter: 2023Q2

REPORT INFORMATION
  Report Type: Spontaneous
  Country: CN (occurrence: CN)
  Receive Date: 20230524
  Receipt Date: 20230605
  Transmission Date: 20230722
  Serious: Yes (Other)
  Sender: FDA-Public Use
  Company Number: CN-NOVOPROD-1064629

PATIENT
  Age: 60 Year
  Sex: Male
  Weight: 60 kg

DRUGS (1)
  1. NOVOLIN R [Suspect]
     Active Substance: INSULIN HUMAN
     Indication: Type 2 diabetes mellitus
     Dosage: 30 IU, QD (16 U IN THE MORNING AND 14 U IN THE EVENING)
     Dates: start: 2003

REACTIONS (3)
  - Cerebral infarction [Unknown]
  - Renal disorder [Unknown]
  - Retinal haemorrhage [Unknown]
